FAERS Safety Report 15331424 (Version 8)
Quarter: 2019Q2

REPORT INFORMATION
  Report Type: Report from Study
  Country: CO (occurrence: CO)
  Receive Date: 20180829
  Receipt Date: 20190424
  Transmission Date: 20190711
  Serious: Yes (Other)
  Sender: FDA-Public Use
  Company Number: PHHY2017CO191590

PATIENT
  Age: 56 Year
  Sex: Male
  Weight: 82 kg

DRUGS (2)
  1. VOTRIENT [Suspect]
     Active Substance: PAZOPANIB HYDROCHLORIDE
     Dosage: 800 MG, QD
     Route: 048
     Dates: start: 20171006
  2. VOTRIENT [Suspect]
     Active Substance: PAZOPANIB HYDROCHLORIDE
     Indication: METASTATIC RENAL CELL CARCINOMA
     Dosage: 400 MG, BID
     Route: 048
     Dates: start: 20170724

REACTIONS (24)
  - Diarrhoea [Unknown]
  - Influenza [Not Recovered/Not Resolved]
  - Product physical issue [Unknown]
  - Asphyxia [Unknown]
  - Oropharyngeal pain [Not Recovered/Not Resolved]
  - Pain [Unknown]
  - Gastritis [Unknown]
  - Cough [Unknown]
  - Dry skin [Unknown]
  - Skin exfoliation [Unknown]
  - Pharyngitis [Unknown]
  - Decreased immune responsiveness [Unknown]
  - Gastrooesophageal reflux disease [Not Recovered/Not Resolved]
  - Hyperchlorhydria [Unknown]
  - Pyrexia [Unknown]
  - Headache [Unknown]
  - Vomiting [Unknown]
  - Choking [Not Recovered/Not Resolved]
  - Dizziness [Unknown]
  - Liver disorder [Unknown]
  - General physical health deterioration [Unknown]
  - Dyspepsia [Not Recovered/Not Resolved]
  - Chest pain [Not Recovered/Not Resolved]
  - Dyspnoea [Unknown]

NARRATIVE: CASE EVENT DATE: 20180410
